FAERS Safety Report 13502530 (Version 1)
Quarter: 2017Q2

REPORT INFORMATION
  Report Type: Spontaneous
  Country: DE (occurrence: DE)
  Receive Date: 20170502
  Receipt Date: 20170502
  Transmission Date: 20170830
  Serious: Yes (Life-Threatening, Other)
  Sender: FDA-Public Use
  Company Number: DE-TORRENT-00006447

PATIENT
  Age: 2 Day
  Sex: Female

DRUGS (8)
  1. VIGABATRIN. [Suspect]
     Active Substance: VIGABATRIN
  2. LEVETIRACETAM. [Suspect]
     Active Substance: LEVETIRACETAM
  3. PYRIDOXAL PHOSPHATE [Suspect]
     Active Substance: PYRIDOXAL PHOSPHATE
  4. PHENOBARBITAL. [Suspect]
     Active Substance: PHENOBARBITAL
  5. ZONISAMIDE. [Suspect]
     Active Substance: ZONISAMIDE
  6. VITAMIN B6 [Suspect]
     Active Substance: PYRIDOXINE HYDROCHLORIDE
  7. DEXAMETHASONE. [Suspect]
     Active Substance: DEXAMETHASONE
  8. CALCIUM FOLINATE [Suspect]
     Active Substance: LEUCOVORIN CALCIUM

REACTIONS (1)
  - Drug ineffective [Unknown]
